FAERS Safety Report 7513438-0 (Version None)
Quarter: 2011Q2

REPORT INFORMATION
  Report Type: 
  Country: None (occurrence: None)
  Receive Date: 20110531
  Receipt Date: 20110127
  Transmission Date: 20111010
  Serious: Yes (Other)
  Sender: FDA-Public Use
  Company Number: US-BAYER-201038429NA

PATIENT
  Age: 24 Year
  Sex: Female
  Weight: 86.168 kg

DRUGS (13)
  1. YAZ [Suspect]
     Indication: ACNE
     Dosage: UNK UNK, QD
     Dates: start: 20030508
  2. DROSPIRENONE AND ETHINYL ESTRADIOL [Suspect]
     Indication: CONTRACEPTION
     Dosage: UNK
     Dates: start: 20030918, end: 20090821
  3. PROMETHAZINE [Concomitant]
  4. HYDROCODONE BITARTRATE [Concomitant]
  5. PLEXION [Concomitant]
     Route: 061
  6. DICYCLOMINE [Concomitant]
  7. RETIN-A [Concomitant]
     Route: 061
  8. VITAMINS WITH MINERALS [Concomitant]
  9. YASMIN [Suspect]
     Indication: CONTRACEPTION
  10. DIFFERIN [Concomitant]
     Route: 061
  11. ANTIBIOTICS [Concomitant]
  12. BACTRIM DS [Concomitant]
     Dosage: UNK UNK, BID
     Route: 048
  13. YASMIN [Suspect]
     Indication: ACNE
     Dosage: UNK UNK, QD
     Dates: start: 20030528, end: 20080918

REACTIONS (9)
  - CHOLESTEROSIS [None]
  - NAUSEA [None]
  - POST PROCEDURAL DIARRHOEA [None]
  - CHOLELITHIASIS [None]
  - INJURY [None]
  - EMOTIONAL DISTRESS [None]
  - GALLBLADDER INJURY [None]
  - ABDOMINAL PAIN UPPER [None]
  - SCAR [None]
